FAERS Safety Report 8764827 (Version 8)
Quarter: 2013Q1

REPORT INFORMATION
  Report Type: Report from Study
  Country: ES (occurrence: ES)
  Receive Date: 20120831
  Receipt Date: 20130313
  Transmission Date: 20140127
  Serious: Yes (Hospitalization)
  Sender: FDA-Public Use
  Company Number: ES-ROCHE-1101473

PATIENT
  Age: 55 Year
  Sex: Male
  Weight: 83.5 kg

DRUGS (13)
  1. TOCILIZUMAB [Suspect]
     Indication: RHEUMATOID ARTHRITIS
     Dosage: LAST DOSE:162MG; DATE OF MOST RECENT DOSE PRIOR TO SAE:30/JUL/2012
     Route: 058
     Dates: start: 20111103
  2. BLINDED TOCILIZUMAB [Suspect]
     Indication: RHEUMATOID ARTHRITIS
     Dosage: LAST DOSE PRIOR TO SAE:18/OCT/2011
     Route: 058
     Dates: start: 20110510
  3. BLINDED TOCILIZUMAB [Suspect]
     Indication: RHEUMATOID ARTHRITIS
     Dosage: LAST DOSE PRIOR TO SAE:27/SEP/2011
     Route: 042
     Dates: start: 20110510
  4. METHOTREXATE [Concomitant]
     Indication: RHEUMATOID ARTHRITIS
     Route: 058
     Dates: start: 2008
  5. FOLIC ACID [Concomitant]
     Indication: RHEUMATOID ARTHRITIS
     Route: 048
     Dates: start: 2008
  6. OMEPRAZOLE [Concomitant]
     Route: 048
     Dates: start: 2011
  7. ENALAPRIL [Concomitant]
     Route: 048
     Dates: start: 2008
  8. PREDNISONE [Concomitant]
     Indication: RHEUMATOID ARTHRITIS
     Route: 048
     Dates: start: 20111103
  9. ACIDO IBANDRONICO [Concomitant]
     Indication: RHEUMATOID ARTHRITIS
     Route: 048
     Dates: start: 20111103
  10. PARACETAMOL [Concomitant]
     Indication: RHEUMATOID ARTHRITIS
     Route: 048
     Dates: start: 20120511
  11. TRAMADOL HIDROCLORURO [Concomitant]
     Indication: RHEUMATOID ARTHRITIS
     Route: 048
     Dates: start: 20120511
  12. CALCIUM CARBONATE [Concomitant]
     Route: 048
     Dates: start: 20120517
  13. CHOLECALCIFEROL [Concomitant]
     Route: 048
     Dates: start: 20120517

REACTIONS (1)
  - Colitis ulcerative [Recovering/Resolving]
